FAERS Safety Report 6011293-1 (Version None)
Quarter: 2008Q4

REPORT INFORMATION
  Report Type: 
  Country: None (occurrence: None)
  Receive Date: 20081218
  Receipt Date: 20081205
  Transmission Date: 20090506
  Serious: Yes (Hospitalization)
  Sender: FDA-Public Use
  Company Number: JP-PFIZER INC-2008152802

PATIENT

DRUGS (1)
  1. SAXIZON [Suspect]
     Indication: ASTHMA
     Route: 042
     Dates: start: 20070101

REACTIONS (1)
  - ASTHMA [None]
